FAERS Safety Report 9485923 (Version 1)
Quarter: 2013Q3

REPORT INFORMATION
  Report Type: Spontaneous
  Country: US (occurrence: US)
  Receive Date: 20130829
  Receipt Date: 20130829
  Transmission Date: 20140515
  Serious: No
  Sender: FDA-Public Use
  Company Number: US-GLAXOSMITHKLINE-A0994031A

PATIENT
  Age: 66 Year
  Sex: Female

DRUGS (1)
  1. ZOVIRAX [Suspect]
     Indication: GENITAL HERPES
     Route: 061
     Dates: start: 20120503, end: 20120503

REACTIONS (4)
  - Application site pain [Recovered/Resolved]
  - Drug dispensing error [Unknown]
  - Drug ineffective [Unknown]
  - Product quality issue [Unknown]
